FAERS Safety Report 16665558 (Version 3)
Quarter: 2022Q2

REPORT INFORMATION
  Report Type: Report from Study
  Country: DE (occurrence: DE)
  Receive Date: 20190803
  Receipt Date: 20220420
  Transmission Date: 20220721
  Serious: Yes (Hospitalization)
  Sender: FDA-Public Use
  Company Number: DE-MERCK HEALTHCARE KGAA-9107860

PATIENT
  Age: 76 Year
  Sex: Male
  Weight: 88 kg

DRUGS (9)
  1. CETUXIMAB [Suspect]
     Active Substance: CETUXIMAB
     Indication: Colorectal cancer metastatic
     Dosage: 250 MG/M2, UNKNOWN
     Route: 042
     Dates: start: 20190703, end: 20190718
  2. CETUXIMAB [Suspect]
     Active Substance: CETUXIMAB
     Dosage: 250 MG/M2, UNKNOWN
     Route: 042
     Dates: start: 20190801
  3. IRINOTECAN [Concomitant]
     Active Substance: IRINOTECAN
     Indication: Colorectal cancer metastatic
     Dosage: 180 MG/M2, UNK
     Route: 042
     Dates: start: 20190703, end: 20190718
  4. IRINOTECAN [Concomitant]
     Active Substance: IRINOTECAN
     Dosage: 180 MG/M2, UNK
     Route: 042
     Dates: start: 20190815
  5. LEUCOVORIN [Concomitant]
     Active Substance: LEUCOVORIN
     Indication: Colorectal cancer metastatic
     Dosage: 400 MG/M2, UNK
     Route: 042
     Dates: start: 20190703, end: 20190718
  6. LEUCOVORIN [Concomitant]
     Active Substance: LEUCOVORIN
     Dosage: 400 MG/M2, UNK
     Route: 042
     Dates: start: 20190815
  7. FLUOROURACIL [Concomitant]
     Active Substance: FLUOROURACIL
     Indication: Colorectal cancer metastatic
     Dosage: 400 MG/M2, UNK
     Route: 040
     Dates: start: 20190703
  8. FLUOROURACIL [Concomitant]
     Active Substance: FLUOROURACIL
     Dosage: 2400 MG/M2, UNK
     Route: 041
     Dates: start: 20190703, end: 20190718
  9. FLUOROURACIL [Concomitant]
     Active Substance: FLUOROURACIL
     Dosage: 2400 MG/M2, UNK
     Route: 041
     Dates: start: 20190815

REACTIONS (3)
  - Acute kidney injury [Recovered/Resolved]
  - Diarrhoea [Recovered/Resolved]
  - Dehydration [Recovered/Resolved]

NARRATIVE: CASE EVENT DATE: 20190725
